FAERS Safety Report 10235978 (Version 1)
Quarter: 2014Q1

REPORT INFORMATION
  Report Type: Spontaneous
  Country: US (occurrence: None)
  Receive Date: 20140306
  Receipt Date: 20140306
  Transmission Date: 20141002
  Serious: Yes (Other)
  Sender: FDA-Public Use
  Company Number: 163-21880-13104146

PATIENT
  Age: 73 Year
  Sex: Male

DRUGS (7)
  1. REVLIMID [Suspect]
     Indication: PLASMA CELL MYELOMA
     Dosage: 15 MG, 21 IN 28 D, PO
     Route: 048
     Dates: start: 20131004, end: 20131107
  2. DULCOLAX (BISACODYL) [Concomitant]
  3. DELZICOL (MESALAZINE) [Concomitant]
  4. TAMSULOSIN (TAMSULOSIN) [Concomitant]
  5. ACYCLOVIR (ACICLOVIR) (ACICLOVIR) [Concomitant]
  6. DAPSONE (DAPSONE) [Concomitant]
  7. PRILOSEC (OMEPRAZOLE) [Concomitant]

REACTIONS (4)
  - Hypoxia [None]
  - Fatigue [None]
  - Constipation [None]
  - Diarrhoea [None]
